FAERS Safety Report 4539688-3 (Version None)
Quarter: 2004Q4

REPORT INFORMATION
  Report Type: 
  Country: None (occurrence: None)
  Receive Date: 20041228
  Receipt Date: 20030605
  Transmission Date: 20050328
  Serious: Yes (Hospitalization, Disabling, Other)
  Sender: FDA-Public Use
  Company Number: US-MERCK-0306USA00842

PATIENT
  Age: 44 Year
  Sex: Female
  Weight: 82 kg

DRUGS (8)
  1. KEFLEX [Concomitant]
     Route: 065
  2. ZIAC [Concomitant]
     Indication: HYPERTENSION
     Route: 065
  3. DOXIDAN [Concomitant]
     Route: 065
  4. STADOL [Concomitant]
     Route: 065
  5. PROZAC [Concomitant]
     Route: 065
  6. VIOXX [Suspect]
     Route: 048
  7. AMBIEN [Concomitant]
     Route: 065
  8. PEPCID [Concomitant]
     Indication: GASTROOESOPHAGEAL REFLUX DISEASE
     Route: 048

REACTIONS (7)
  - ADVERSE EVENT [None]
  - ANXIETY [None]
  - ARTHRALGIA [None]
  - MAJOR DEPRESSION [None]
  - MIGRAINE [None]
  - POLYTRAUMATISM [None]
  - SUICIDAL IDEATION [None]
